FAERS Safety Report 5640728-9 (Version None)
Quarter: 2008Q1

REPORT INFORMATION
  Report Type: 
  Country: None (occurrence: None)
  Receive Date: 20080227
  Receipt Date: 20080122
  Transmission Date: 20080703
  Serious: No
  Sender: FDA-Public Use
  Company Number: US-BAXTER-2008BH000673

PATIENT
  Sex: Male
  Weight: 81 kg

DRUGS (2)
  1. HEPARIN SODIUM [Suspect]
     Indication: PROPHYLAXIS
     Dosage: DOSE UNIT:UNKNOWN
     Route: 033
     Dates: start: 20071201
  2. DIANEAL [Concomitant]
     Indication: RENAL FAILURE CHRONIC
     Route: 033
     Dates: start: 20071201

REACTIONS (3)
  - ANAEMIA [None]
  - DYSPNOEA [None]
  - HYPOTENSION [None]
